FAERS Safety Report 8976425 (Version 2)
Quarter: 2013Q1

REPORT INFORMATION
  Report Type: Spontaneous
  Country: JP (occurrence: JP)
  Receive Date: 20121220
  Receipt Date: 20130208
  Transmission Date: 20140127
  Serious: Yes (Life-Threatening, Hospitalization, Other)
  Sender: FDA-Public Use
  Company Number: JP-009507513-1211JPN005358

PATIENT
  Age: 58 Year
  Sex: Female
  Weight: 36 kg

DRUGS (8)
  1. TEMODAL [Suspect]
     Indication: MALIGNANT GLIOMA
     Dosage: 75 MG/M2, QD
     Route: 048
     Dates: start: 20120823, end: 20120923
  2. GOREI-SAN [Concomitant]
     Indication: BRAIN OEDEMA
     Dosage: 7.5 G, QD FORMULATION: POW
     Route: 048
     Dates: start: 20120815
  3. DAIO-KANZO-TO [Concomitant]
     Indication: CONSTIPATION
     Dosage: 7.5 G, TID
     Route: 048
     Dates: start: 20120827
  4. SEROQUEL [Concomitant]
     Indication: DELIRIUM
     Dosage: 25 MG, QD
     Route: 048
     Dates: start: 20120827, end: 20120925
  5. TAKEPRON [Concomitant]
     Indication: GASTRIC ULCER
     Dosage: 30 MG, QD
     Route: 048
     Dates: start: 20120831, end: 20120925
  6. SINSERON [Concomitant]
     Indication: VOMITING
     Dosage: 8 MG, QD
     Route: 048
     Dates: start: 20120823, end: 20120923
  7. PREDNISOLONE [Concomitant]
     Indication: BRAIN OEDEMA
     Dosage: 40 MG, QD
     Route: 048
     Dates: start: 20120907
  8. PREDNISOLONE [Concomitant]
     Indication: RASH

REACTIONS (3)
  - Aplastic anaemia [Recovering/Resolving]
  - Drug eruption [Recovered/Resolved]
  - Bone marrow failure [Unknown]
